FAERS Safety Report 8860685 (Version 1)
Quarter: 2012Q4

REPORT INFORMATION
  Report Type: 
  Country: US (occurrence: US)
  Receive Date: 20121025
  Receipt Date: 20121025
  Transmission Date: 20130627
  Serious: No
  Sender: FDA-Public Use
  Company Number: US-ASTRAZENECA-2012SE79188

PATIENT
  Age: 55 Year
  Sex: Female

DRUGS (4)
  1. CRESTOR [Suspect]
     Route: 048
  2. LIPITOR [Concomitant]
  3. PRAVASTATATIN [Concomitant]
  4. SIMVASTATIN [Concomitant]

REACTIONS (4)
  - Adverse drug reaction [Unknown]
  - Renal pain [Unknown]
  - Myalgia [Unknown]
  - Arthralgia [Unknown]
